FAERS Safety Report 11200793 (Version 1)
Quarter: 2015Q2

REPORT INFORMATION
  Report Type: Spontaneous
  Country: US (occurrence: US)
  Receive Date: 20150618
  Receipt Date: 20150618
  Transmission Date: 20150821
  Serious: Yes (Death, Hospitalization)
  Sender: FDA-Public Use
  Company Number: US-ACTELION-A-NJ2015-119303

PATIENT
  Age: 59 Year
  Sex: Female

DRUGS (1)
  1. VELETRI [Suspect]
     Active Substance: EPOPROSTENOL
     Indication: PULMONARY HYPERTENSION
     Dosage: 35.5 NG/KG, PER MIN
     Route: 042
     Dates: start: 20110127, end: 20150605

REACTIONS (3)
  - Large intestine perforation [Fatal]
  - Large intestinal polypectomy [Unknown]
  - Post procedural complication [Fatal]

NARRATIVE: CASE EVENT DATE: 20150605
